FAERS Safety Report 14381539 (Version 1)
Quarter: 2018Q1

REPORT INFORMATION
  Report Type: Other
  Country: US (occurrence: US)
  Receive Date: 20180112
  Receipt Date: 20180112
  Transmission Date: 20180509
  Serious: Yes (Death)
  Sender: FDA-Public Use
  Company Number: US-GENUS_LIFESCIENCES-USA-POI0580201800015

PATIENT
  Age: 25 Year
  Sex: Female

DRUGS (9)
  1. LAMOTRIGINE. [Suspect]
     Active Substance: LAMOTRIGINE
     Dates: end: 2016
  2. METHADONE [Suspect]
     Active Substance: METHADONE HYDROCHLORIDE
     Dates: end: 2016
  3. TRAMADOL. [Suspect]
     Active Substance: TRAMADOL
     Dates: end: 2016
  4. HYDROXYZINE [Suspect]
     Active Substance: HYDROXYZINE HYDROCHLORIDE
     Dates: end: 2016
  5. CLONAZEPAM. [Suspect]
     Active Substance: CLONAZEPAM
     Dates: end: 2016
  6. OXYCODONE HCL CAPSULES [Suspect]
     Active Substance: OXYCODONE HYDROCHLORIDE
     Dates: end: 2016
  7. PREGABALIN. [Suspect]
     Active Substance: PREGABALIN
     Dates: end: 2016
  8. QUETIAPINE. [Suspect]
     Active Substance: QUETIAPINE
     Dates: end: 2016
  9. DIAZEPAM. [Suspect]
     Active Substance: DIAZEPAM
     Dates: end: 2016

REACTIONS (3)
  - Cardiac arrest [Fatal]
  - Respiratory arrest [Fatal]
  - Completed suicide [Fatal]

NARRATIVE: CASE EVENT DATE: 2016
